FAERS Safety Report 20507536 (Version 1)
Quarter: 2022Q1

REPORT INFORMATION
  Report Type: Spontaneous
  Country: US (occurrence: None)
  Receive Date: 20220222
  Receipt Date: 20220222
  Transmission Date: 20220424
  Serious: Yes (Disabling, Other)
  Sender: FDA-Public Use
  Company Number: None

PATIENT
  Age: 27 Year
  Sex: Male
  Weight: 81.65 kg

DRUGS (2)
  1. VALGANCICLOVIR [Suspect]
     Active Substance: VALGANCICLOVIR
     Indication: Herpes simplex
     Dosage: FREQUENCY : DAILY;?
     Route: 048
     Dates: start: 20210716, end: 20220126
  2. VALGANCICLOVIR [Suspect]
     Active Substance: VALGANCICLOVIR
     Indication: Infection prophylaxis

REACTIONS (5)
  - Product prescribing error [None]
  - Product name confusion [None]
  - Product name confusion [None]
  - Product label issue [None]
  - Drug monitoring procedure not performed [None]

NARRATIVE: CASE EVENT DATE: 20220128
